FAERS Safety Report 8560281-X (Version None)
Quarter: 2012Q3

REPORT INFORMATION
  Report Type: 
  Country: None (occurrence: None)
  Receive Date: 20120723
  Receipt Date: 20120710
  Transmission Date: 20120928
  Serious: Yes (Hospitalization)
  Sender: FDA-Public Use
  Company Number: AUR-APL-2012-03035

PATIENT
  Age: 81 Year
  Sex: Male

DRUGS (15)
  1. PIASCLEDINE (PIASCLEDINE /01305801/) [Suspect]
     Dosage: 600 MG TO 900 MG DAILY
     Dates: start: 20070101
  2. CODOLIPRANE ADULTES (PANADEINE CO) [Suspect]
     Indication: PRODUCT USED FOR UNKNOWN INDICATION
  3. ATORVASTATIN CALCIUM [Suspect]
     Indication: PRODUCT USED FOR UNKNOWN INDICATION
     Dosage: 10 MG (10 MG, 1 IN 1 D)
  4. ATARAX [Suspect]
     Indication: PRODUCT USED FOR UNKNOWN INDICATION
     Dosage: 10 MG
  5. IRBESARTAN AND HYDROCHLOROTHIAZIDE [Suspect]
     Indication: PRODUCT USED FOR UNKNOWN INDICATION
     Dosage: 300 MG/15 MG
     Dates: start: 20060101
  6. MIRTAZAPINE [Suspect]
     Indication: DEPRESSION
     Dosage: ORAL
     Dates: start: 20120102, end: 20120204
  7. NABUMETONE [Suspect]
     Dosage: 1000 MG (500 MG, 2 IN 1D)
     Dates: start: 20100101
  8. SOTALOL HCL [Suspect]
     Indication: PRODUCT USED FOR UNKNOWN INDICATION
     Dosage: ORAL
     Route: 048
     Dates: start: 20090101
  9. METFFORMIN HYDROCHLORIDE [Suspect]
     Indication: PRODUCT USED FOR UNKNOWN INDICATION
     Dosage: 2 DOSAGE FORMS (1 DOSAGE FORMS, 2 IN 1 D)
  10. IBUPROFEN [Suspect]
     Indication: PRODUCT USED FOR UNKNOWN INDICATION
     Dosage: AS NEEDED
  11. RABEPRAZOLE SODIUM [Suspect]
     Indication: PRODUCT USED FOR UNKNOWN INDICATION
     Dosage: 40 MG (20 MG, 2 IN 1 D)
     Dates: start: 20100101
  12. NICARDIPINE HYDROCHLORIDE [Suspect]
     Indication: PRODUCT USED FOR UNKNOWN INDICATION
     Dosage: 2 TABLETS DAILY, ORAL; 20 MG
     Route: 048
     Dates: start: 20070101
  13. NICARDIPINE HYDROCHLORIDE [Suspect]
     Indication: PRODUCT USED FOR UNKNOWN INDICATION
     Dosage: 2 TABLETS DAILY, ORAL; 20 MG
     Route: 048
     Dates: end: 20110101
  14. ZOPICLONE (ZOPICLONE) [Suspect]
     Indication: PRODUCT USED FOR UNKNOWN INDICATION
     Dosage: 7.5 MG IN EVENING
  15. AVODART [Suspect]
     Indication: PRODUCT USED FOR UNKNOWN INDICATION
     Dosage: 0.5 MG (0.5 MG, 1 IN 1 D)

REACTIONS (13)
  - ERYTHEMA [None]
  - HYPERAESTHESIA [None]
  - INSOMNIA [None]
  - GAIT DISTURBANCE [None]
  - SKIN INDURATION [None]
  - WOUND [None]
  - LOCALISED OEDEMA [None]
  - WALKING AID USER [None]
  - SKIN FRAGILITY [None]
  - OEDEMA PERIPHERAL [None]
  - PAIN IN EXTREMITY [None]
  - SENSATION OF HEAVINESS [None]
  - DRUG INEFFECTIVE [None]
